FAERS Safety Report 21290228 (Version 1)
Quarter: 2022Q3

REPORT INFORMATION
  Report Type: Spontaneous
  Country: ES (occurrence: ES)
  Receive Date: 20220902
  Receipt Date: 20220902
  Transmission Date: 20221027
  Serious: Yes (Death)
  Sender: FDA-Public Use
  Company Number: None

PATIENT
  Age: 72 Year
  Sex: Male

DRUGS (15)
  1. CARBOPLATIN [Suspect]
     Active Substance: CARBOPLATIN
     Indication: Lung neoplasm malignant
     Dosage: 479.72 MG, SINGLE
     Dates: start: 20220728
  2. FUROSEMIDE [Concomitant]
     Active Substance: FUROSEMIDE
     Indication: Hypertension
     Dosage: 40 MG, 1X/DAY (BREAKFAST)
     Route: 048
     Dates: start: 20220118
  3. OMEPRAZOLE [Concomitant]
     Active Substance: OMEPRAZOLE
     Indication: Alcohol abuse
     Dosage: 20 MG, 1X/DAY (BEFORE BREAKFAST)
     Route: 048
     Dates: start: 20191115
  4. VINORELBINE TARTRATE [Concomitant]
     Active Substance: VINORELBINE TARTRATE
     Indication: Lung neoplasm malignant
     Dosage: 110 MG, WEEKLY (EVERY 7 DAYS)
     Dates: start: 20220728
  5. ENALAPRIL MALEATE\NITRENDIPINE [Concomitant]
     Active Substance: ENALAPRIL MALEATE\NITRENDIPINE
     Indication: Myocardial ischaemia
     Dosage: 20 MG, 1X/DAY(BREAKFAST)
     Route: 048
     Dates: start: 20161125
  6. TICAGRELOR [Concomitant]
     Active Substance: TICAGRELOR
     Indication: Acute myocardial infarction
     Dosage: 90 MG, 2X/DAY
     Route: 048
     Dates: start: 20220711
  7. ACLIDINIUM BROMIDE\FORMOTEROL FUMARATE [Concomitant]
     Active Substance: ACLIDINIUM BROMIDE\FORMOTEROL FUMARATE
     Indication: Pneumonia
     Dosage: 2 DF (PUFF), 2X/DAY
     Dates: start: 20220209
  8. CRESTOR [Concomitant]
     Active Substance: ROSUVASTATIN CALCIUM
     Indication: Myocardial ischaemia
     Dosage: 20 MG, 1X/DAY (DINNER)
     Route: 048
     Dates: start: 20211202
  9. RANOLAZINE [Concomitant]
     Active Substance: RANOLAZINE
     Indication: Myocardial ischaemia
     Dosage: 500 MG, 2X/DAY
     Route: 048
     Dates: start: 20220712
  10. ATROVENT [Concomitant]
     Active Substance: IPRATROPIUM BROMIDE
     Indication: Pneumonia
     Dosage: 40 UG, 4X/DAY (EVERY 6 HOURS)
     Dates: start: 20220209
  11. ALOPURINOL CINFA [Concomitant]
     Indication: Gout
     Dosage: 300 MG, 1X/DAY(BREAKFAST)
     Route: 048
     Dates: start: 20121212
  12. IVABRADINE HYDROCHLORIDE [Concomitant]
     Active Substance: IVABRADINE HYDROCHLORIDE
     Indication: Myocardial ischaemia
     Dosage: 7.5 MG, 2X/DAY(BREAKFAST / DINNER)
     Route: 048
     Dates: start: 20170628
  13. NEBIVOLOL HYDROCHLORIDE [Concomitant]
     Active Substance: NEBIVOLOL HYDROCHLORIDE
     Indication: Myocardial ischaemia
     Dosage: 5 MG, 1X/DAY(DINNER)
     Route: 048
     Dates: start: 20101214
  14. ASPIRIN [Concomitant]
     Active Substance: ASPIRIN
     Indication: Myocardial ischaemia
     Dosage: 100 MG, 1X/DAY (BREAKFAST)
     Route: 048
     Dates: start: 20190416
  15. DAIVOBET [Concomitant]
     Active Substance: BETAMETHASONE DIPROPIONATE\CALCIPOTRIENE
     Indication: Eczema
     Dosage: 1 DF, 2X/DAY (BREAKFAST AND DINNER)
     Route: 061
     Dates: start: 20211005

REACTIONS (2)
  - Septic shock [Fatal]
  - Neutropenia [Fatal]

NARRATIVE: CASE EVENT DATE: 20220809
